FAERS Safety Report 13600009 (Version 2)
Quarter: 2017Q3

REPORT INFORMATION
  Report Type: Spontaneous
  Country: RU (occurrence: RU)
  Receive Date: 20170601
  Receipt Date: 20170826
  Transmission Date: 20171127
  Serious: Yes (Other)
  Sender: FDA-Public Use
  Company Number: RU-ROCHE-1941681

PATIENT
  Sex: Male

DRUGS (7)
  1. XOLAIR [Suspect]
     Active Substance: OMALIZUMAB
     Indication: URTICARIA
     Route: 065
     Dates: end: 201706
  2. XOLAIR [Suspect]
     Active Substance: OMALIZUMAB
     Indication: BRONCHOSPASM
     Route: 065
  3. LORDESTIN [Concomitant]
     Indication: PRODUCT USED FOR UNKNOWN INDICATION
     Route: 065
  4. XOLAIR [Suspect]
     Active Substance: OMALIZUMAB
     Indication: HYPOTENSION
  5. XOLAIR [Suspect]
     Active Substance: OMALIZUMAB
     Indication: CARDIOVASCULAR DISORDER
  6. XOLAIR [Suspect]
     Active Substance: OMALIZUMAB
     Indication: SWELLING FACE
  7. PREDNISOLONE. [Concomitant]
     Active Substance: PREDNISOLONE
     Indication: CONDITION AGGRAVATED
     Route: 048

REACTIONS (2)
  - White blood cell count decreased [Recovered/Resolved]
  - Off label use [Unknown]
